FAERS Safety Report 5373635-X (Version None)
Quarter: 2007Q2

REPORT INFORMATION
  Report Type: 
  Country: None (occurrence: None)
  Receive Date: 20070628
  Receipt Date: 20070616
  Transmission Date: 20071010
  Serious: Yes (Other)
  Sender: FDA-Public Use
  Company Number: GB-ROCHE-503857

PATIENT
  Age: 72 Year
  Sex: Female
  Weight: 104 kg

DRUGS (12)
  1. XENICAL [Suspect]
     Indication: OBESITY
     Route: 048
     Dates: start: 20060101
  2. XENICAL [Suspect]
     Route: 048
     Dates: start: 20070201, end: 20070605
  3. MIXTARD HUMAN 70/30 [Concomitant]
     Route: 058
  4. ASPIRIN [Concomitant]
     Route: 048
  5. NEORECORMON [Concomitant]
     Indication: RENAL DISORDER
     Route: 058
  6. CALCIUM SUPPLEMENTS [Concomitant]
     Route: 048
  7. LACTULOSE [Concomitant]
     Indication: CONSTIPATION
     Route: 048
  8. SODIUM PICOSULPHATE [Concomitant]
     Indication: CONSTIPATION
     Route: 048
  9. SENNA [Concomitant]
     Indication: CONSTIPATION
     Route: 048
  10. AMLODIPINE [Concomitant]
     Indication: HYPERTENSION
     Route: 048
  11. PULMICORT [Concomitant]
     Indication: ASTHMA
     Route: 055
  12. IPRATROPIUM BROMIDE [Concomitant]
     Indication: ASTHMA
     Route: 055

REACTIONS (2)
  - DIABETIC COMPLICATION [None]
  - RENAL DISORDER [None]
